FAERS Safety Report 9443211 (Version 1)
Quarter: 2013Q3

REPORT INFORMATION
  Report Type: Spontaneous
  Country: JP (occurrence: JP)
  Receive Date: 20130806
  Receipt Date: 20130806
  Transmission Date: 20140515
  Serious: Yes (Other)
  Sender: FDA-Public Use
  Company Number: JP-IAC JAPAN XML-GBR-2013-0015090

PATIENT
  Age: 65 Year
  Sex: Male

DRUGS (2)
  1. BUPRENORPHINE TRANSDERMAL SYSTEM [Suspect]
     Indication: PRODUCT USED FOR UNKNOWN INDICATION
     Route: 062
  2. FENTOS [Concomitant]
     Indication: CANCER PAIN
     Route: 062

REACTIONS (1)
  - Pharyngeal cancer [Unknown]
